FAERS Safety Report 14294505 (Version 1)
Quarter: 2017Q4

REPORT INFORMATION
  Report Type: Spontaneous
  Country: DE (occurrence: DE)
  Receive Date: 20171218
  Receipt Date: 20171218
  Transmission Date: 20180321
  Serious: Yes (Other)
  Sender: FDA-Public Use
  Company Number: DE-AUROBINDO-AUR-APL-2017-45425

PATIENT
  Age: 78 Year
  Sex: Male

DRUGS (3)
  1. AMPICILLIN AND SULBACTAM [Suspect]
     Active Substance: AMPICILLIN SODIUM\SULBACTAM SODIUM
     Indication: PNEUMONIA
     Dosage: UNK
     Route: 065
     Dates: start: 201601
  2. TIOTROPIUM [Suspect]
     Active Substance: TIOTROPIUM
     Indication: PNEUMONIA
     Dosage: UNK
     Route: 065
     Dates: start: 201601
  3. FORMOTEROL [Suspect]
     Active Substance: FORMOTEROL
     Indication: PNEUMONIA
     Dosage: UNK
     Route: 065
     Dates: start: 201601

REACTIONS (1)
  - Delirium [Unknown]

NARRATIVE: CASE EVENT DATE: 201601
